FAERS Safety Report 6210706-X (Version None)
Quarter: 2009Q2

REPORT INFORMATION
  Report Type: 
  Country: None (occurrence: None)
  Receive Date: 20090527
  Receipt Date: 20090511
  Transmission Date: 20091009
  Serious: No
  Sender: FDA-Public Use
  Company Number: 8046132

PATIENT
  Age: 4 Year
  Sex: Female

DRUGS (1)
  1. KEPPRA [Suspect]
     Dosage: 6.5 ML 2/D PO
     Route: 048
     Dates: start: 20090301

REACTIONS (2)
  - CONVULSION [None]
  - INCORRECT PRODUCT STORAGE [None]
